FAERS Safety Report 6903608-4 (Version None)
Quarter: 2010Q3

REPORT INFORMATION
  Report Type: 
  Country: None (occurrence: None)
  Receive Date: 20100803
  Receipt Date: 20081023
  Transmission Date: 20110219
  Serious: No
  Sender: FDA-Public Use
  Company Number: US-PFIZER INC-2008089854

PATIENT
  Sex: Female
  Weight: 59.42 kg

DRUGS (12)
  1. LYRICA [Suspect]
     Indication: FIBROMYALGIA
     Dates: start: 20081014
  2. MOBIC [Concomitant]
     Indication: PAIN
  3. ASCORBIC ACID/COPPER/RETINOL/TOCOPHEROL/ZINC [Concomitant]
  4. ZONISAMIDE [Concomitant]
  5. AMBIEN [Concomitant]
     Indication: SLEEP DISORDER
  6. WELLBUTRIN [Concomitant]
  7. ALDACTONE [Concomitant]
     Indication: HAIR DISORDER
  8. LYSINE [Concomitant]
  9. BIOTIN [Concomitant]
  10. MULTI-VITAMINS [Concomitant]
  11. CALCIUM [Concomitant]
  12. MIRALAX [Concomitant]
     Indication: CONSTIPATION
     Dates: end: 20081001

REACTIONS (4)
  - DIARRHOEA [None]
  - DIZZINESS [None]
  - FAECAL INCONTINENCE [None]
  - POLLAKIURIA [None]
